FAERS Safety Report 18766402 (Version 1)
Quarter: 2021Q1

REPORT INFORMATION
  Report Type: Spontaneous
  Country: US (occurrence: US)
  Receive Date: 20210118
  Receipt Date: 20210118
  Transmission Date: 20210419
  Serious: Yes (Hospitalization)
  Sender: FDA-Public Use
  Company Number: None

PATIENT
  Sex: Male

DRUGS (22)
  1. ALLOPURINOL. [Concomitant]
     Active Substance: ALLOPURINOL
  2. IRBESARTAN. [Concomitant]
     Active Substance: IRBESARTAN
  3. METFORMIN [Concomitant]
     Active Substance: METFORMIN HYDROCHLORIDE
  4. POT CITRATE [Concomitant]
     Active Substance: POTASSIUM CITRATE
  5. ZINC SULFATE. [Concomitant]
     Active Substance: ZINC SULFATE
  6. XOLAIR [Suspect]
     Active Substance: OMALIZUMAB
     Indication: ASTHMA
     Route: 058
     Dates: start: 20171207
  7. DESLORATADIN [Concomitant]
     Active Substance: DESLORATADINE
  8. SPIRIVA [Concomitant]
     Active Substance: TIOTROPIUM BROMIDE MONOHYDRATE
  9. CLARITHROMYC [Concomitant]
  10. MONTELUKAST [Concomitant]
     Active Substance: MONTELUKAST SODIUM
  11. PIOGLITAZONE. [Concomitant]
     Active Substance: PIOGLITAZONE
  12. VITAMIN C [Concomitant]
     Active Substance: ASCORBIC ACID
  13. XOLAIR [Suspect]
     Active Substance: OMALIZUMAB
     Indication: ASTHMA
     Route: 058
     Dates: start: 20171207
  14. NYSTATIN. [Concomitant]
     Active Substance: NYSTATIN
  15. ATORVASTATIN [Concomitant]
     Active Substance: ATORVASTATIN
  16. DEXAMETHASON [Concomitant]
     Active Substance: DEXAMETHASONE
  17. HYDROCHLOROT [Concomitant]
     Active Substance: HYDROCHLOROTHIAZIDE
  18. MAGNESIUM?OX= [Concomitant]
  19. FENOFIBRATE. [Concomitant]
     Active Substance: FENOFIBRATE
  20. JANUVIA [Concomitant]
     Active Substance: SITAGLIPTIN PHOSPHATE
  21. ALBUTEROL NEB [Concomitant]
     Active Substance: ALBUTEROL
  22. WIXELA INHUB [Concomitant]
     Active Substance: FLUTICASONE PROPIONATE\SALMETEROL XINAFOATE

REACTIONS (2)
  - COVID-19 [None]
  - Pneumonia [None]
